FAERS Safety Report 6335306 (Version 22)
Quarter: 2014Q3

REPORT INFORMATION
  Report Type: Spontaneous
  Country: US (occurrence: US)
  Receive Date: 20070618
  Receipt Date: 20140710
  Transmission Date: 20150326
  Serious: Yes (Death, Hospitalization, Other)
  Sender: FDA-Public Use
  Company Number: PHEH2007US08749

PATIENT
  Age: 54 Year
  Sex: Female

DRUGS (27)
  1. OXYCONTIN [Concomitant]
     Active Substance: OXYCODONE HYDROCHLORIDE
     Dosage: 30 MG, BID
  2. DIGOXIN. [Concomitant]
     Active Substance: DIGOXIN
     Dosage: 0.25 MG, QD
  3. ATIVAN [Concomitant]
     Active Substance: LORAZEPAM
  4. VASOTEC [Concomitant]
     Active Substance: ENALAPRIL MALEATE
     Dosage: 10 MG, QD
     Route: 048
  5. CELEBREX [Concomitant]
     Active Substance: CELECOXIB
     Dosage: 200 MG, QD
  6. FASLODEX [Concomitant]
     Active Substance: FULVESTRANT
  7. TYLENOL [Concomitant]
     Active Substance: ACETAMINOPHEN
  8. LASIX [Concomitant]
     Active Substance: FUROSEMIDE
     Dosage: 20 MG, QD
  9. GEMZAR [Concomitant]
     Active Substance: GEMCITABINE HYDROCHLORIDE
  10. LEXAPRO [Concomitant]
     Active Substance: ESCITALOPRAM OXALATE
  11. FEMARA [Concomitant]
     Active Substance: LETROZOLE
  12. OXYCODONE [Concomitant]
     Active Substance: OXYCODONE
  13. AROMASIN [Concomitant]
     Active Substance: EXEMESTANE
  14. FLONASE [Concomitant]
     Active Substance: FLUTICASONE PROPIONATE
  15. REGLAN [Concomitant]
     Active Substance: METOCLOPRAMIDE HYDROCHLORIDE
  16. TYLENOL EXTRA STRENGTH [Concomitant]
     Active Substance: ACETAMINOPHEN
  17. INVANZ [Concomitant]
     Active Substance: ERTAPENEM SODIUM
     Dosage: 1 G, QD
     Dates: start: 20060624
  18. ZOMETA [Suspect]
     Active Substance: ZOLEDRONIC ACID
     Indication: METASTASES TO PELVIS
     Dosage: UNK UKN, UNK
     Route: 042
     Dates: start: 20030218, end: 20050127
  19. PREVACID [Concomitant]
     Active Substance: LANSOPRAZOLE
     Dosage: 30 MG, QD
  20. MEGACE [Concomitant]
     Active Substance: MEGESTROL ACETATE
  21. AREDIA [Suspect]
     Active Substance: PAMIDRONATE DISODIUM
     Dosage: UNK UKN, UNK
     Route: 042
     Dates: start: 2005
  22. RADIOTHERAPY [Concomitant]
     Active Substance: RADIATION THERAPY
     Indication: PELVIC FRACTURE
     Dates: start: 200305
  23. TAMOXIFEN [Concomitant]
     Active Substance: TAMOXIFEN
     Dates: start: 199908
  24. ROXICET [Concomitant]
     Active Substance: ACETAMINOPHEN\OXYCODONE HYDROCHLORIDE
     Dates: start: 200309
  25. PERCOCET [Concomitant]
     Active Substance: ACETAMINOPHEN\OXYCODONE HYDROCHLORIDE
  26. CLINDAMYCIN [Concomitant]
     Active Substance: CLINDAMYCIN\CLINDAMYCIN PHOSPHATE
     Dosage: 300 MG, QID
     Dates: start: 20060625
  27. COMBIVENT [Concomitant]
     Active Substance: ALBUTEROL SULFATE\IPRATROPIUM BROMIDE
     Dosage: 2 DF,

REACTIONS (114)
  - Atrial flutter [Unknown]
  - Neoplasm progression [Unknown]
  - Metastases to pleura [Unknown]
  - Decreased appetite [Unknown]
  - Mucosal ulceration [Unknown]
  - Metastases to liver [Unknown]
  - Chronic obstructive pulmonary disease [Unknown]
  - Contusion [Unknown]
  - Abdominal pain upper [Unknown]
  - Ascites [Unknown]
  - Spinal compression fracture [Unknown]
  - Purulent discharge [Unknown]
  - Arthropathy [Unknown]
  - Delirium [Unknown]
  - Pericardial effusion [Unknown]
  - Pleural effusion [Unknown]
  - Sinus arrhythmia [Unknown]
  - Pain [Unknown]
  - Malignant neoplasm progression [Unknown]
  - Bone pain [Unknown]
  - Dysphagia [Unknown]
  - Acquired diaphragmatic eventration [Unknown]
  - Small intestinal obstruction [Unknown]
  - Metastases to lung [Unknown]
  - Bone swelling [Unknown]
  - Deformity [Unknown]
  - Swelling face [Unknown]
  - Tongue eruption [Unknown]
  - Jaw disorder [Unknown]
  - Gait disturbance [Unknown]
  - Infection [Recovered/Resolved]
  - Metastases to bone [Unknown]
  - Cholelithiasis [Unknown]
  - Pain in jaw [Unknown]
  - Weight decreased [Unknown]
  - Odynophagia [Unknown]
  - Osteomyelitis [Unknown]
  - Abdominal distension [Unknown]
  - Chest pain [Unknown]
  - Constipation [Unknown]
  - Pathological fracture [Unknown]
  - Comminuted fracture [Unknown]
  - Myalgia [Unknown]
  - Wound [Unknown]
  - Osteosclerosis [Unknown]
  - Spinal osteoarthritis [Unknown]
  - Emotional distress [Unknown]
  - Ileal stenosis [Unknown]
  - Bone fragmentation [Unknown]
  - Pneumonia [Unknown]
  - Fluid overload [Unknown]
  - Obstructive airways disorder [Unknown]
  - Atelectasis [Unknown]
  - Dyspnoea [Unknown]
  - Anaemia [Unknown]
  - Joint swelling [Unknown]
  - Dizziness [Unknown]
  - Lymphadenopathy [Unknown]
  - Oedema peripheral [Unknown]
  - Memory impairment [Unknown]
  - Osteoarthritis [Unknown]
  - Gastrooesophageal reflux disease [Unknown]
  - Left ventricular dysfunction [Unknown]
  - Musculoskeletal pain [Unknown]
  - Death [Fatal]
  - Anxiety [Unknown]
  - Oral cavity fistula [Unknown]
  - Respiratory failure [Unknown]
  - Tachycardia [Unknown]
  - Hypoxia [Unknown]
  - Fibula fracture [Unknown]
  - Nasal congestion [Unknown]
  - Rib fracture [Unknown]
  - Inflammation [Unknown]
  - Osteoradionecrosis [Unknown]
  - Fracture displacement [Unknown]
  - Pneumonitis [Unknown]
  - Mass [Unknown]
  - Hypothermia [Unknown]
  - Nausea [Unknown]
  - Hypotension [Unknown]
  - Urinary tract infection [Unknown]
  - Bone disorder [Unknown]
  - General physical health deterioration [Unknown]
  - Crohn^s disease [Unknown]
  - Osteopenia [Unknown]
  - Oral disorder [Unknown]
  - Dystrophic calcification [Unknown]
  - Pancytopenia [Unknown]
  - Cardiomegaly [Unknown]
  - Urinary incontinence [Unknown]
  - Candida infection [Unknown]
  - Bradycardia [Unknown]
  - Osteonecrosis of jaw [Recovered/Resolved]
  - Dental caries [Unknown]
  - Fall [Unknown]
  - Diarrhoea [Unknown]
  - Arthritis [Unknown]
  - Neck mass [Unknown]
  - Intervertebral disc space narrowing [Unknown]
  - Decreased interest [Unknown]
  - Bone lesion [Unknown]
  - Osteolysis [Unknown]
  - Lung infiltration [Unknown]
  - Impaired healing [Unknown]
  - Hypertension [Unknown]
  - Ileus [Unknown]
  - Haemorrhoids [Unknown]
  - Jaw fracture [Unknown]
  - Injury [Unknown]
  - Tibia fracture [Unknown]
  - Bone deformity [Unknown]
  - Local swelling [Unknown]
  - Erythema [Unknown]

NARRATIVE: CASE EVENT DATE: 20060424
